FAERS Safety Report 19426260 (Version 1)
Quarter: 2021Q2

REPORT INFORMATION
  Report Type: Spontaneous
  Country: US (occurrence: US)
  Receive Date: 20210616
  Receipt Date: 20210616
  Transmission Date: 20210717
  Serious: Yes (Other)
  Sender: FDA-Public Use
  Company Number: US-MYLANLABS-2021M1034905

PATIENT
  Age: 34 Year
  Sex: Female

DRUGS (14)
  1. CISPLATIN. [Suspect]
     Active Substance: CISPLATIN
     Indication: GESTATIONAL TROPHOBLASTIC TUMOUR
     Dosage: 20 MILLIGRAM/SQ. METER RECEIVED ON DAYS 1 AND 2, REPEATED EVERY WEEK FOR 3 WEEKS
     Route: 065
  2. ACTINOMYCIN D [Suspect]
     Active Substance: DACTINOMYCIN
     Indication: CHEMOTHERAPY
  3. ETOPOSIDE. [Suspect]
     Active Substance: ETOPOSIDE
     Indication: GESTATIONAL TROPHOBLASTIC TUMOUR
     Dosage: 100 MILLIGRAM/SQ. METER RECEIVED ON DAYS 1 AND 2, REPEATED EVERY WEEK FOR 3 WEEKS
     Route: 065
  4. ETOPOSIDE. [Suspect]
     Active Substance: ETOPOSIDE
     Dosage: 100 MILLIGRAM/SQ. METER RECEIVED ON DAY 8 POST SURGERY; EP/EMA REGIMEN
  5. CISPLATIN. [Suspect]
     Active Substance: CISPLATIN
     Indication: CHEMOTHERAPY
     Dosage: 75 MILLIGRAM/SQ. METER RECEIVED ON DAY 1 POST SURGERY; EP/EMA REGIMEN
     Route: 042
  6. ACTINOMYCIN D [Suspect]
     Active Substance: DACTINOMYCIN
     Indication: GESTATIONAL TROPHOBLASTIC TUMOUR
     Dosage: 0.5 MILLIGRAM RECEIVED ON DAY 8 POSY SURGERY; EP/EMA REGIMEN
     Route: 042
  7. METHOTREXATE. [Suspect]
     Active Substance: METHOTREXATE
     Indication: CHEMOTHERAPY
  8. METHOTREXATE. [Suspect]
     Active Substance: METHOTREXATE
     Indication: GESTATIONAL TROPHOBLASTIC TUMOUR
     Dosage: 300 MILLIGRAM/SQ. METER RECEIVED ON DAY 9 POST SURGERY; EP/EM REGIMEN
     Route: 042
  9. ETOPOSIDE. [Suspect]
     Active Substance: ETOPOSIDE
     Indication: CHEMOTHERAPY
     Dosage: 150 MILLIGRAM/SQ. METER RECEIVED ON DAY 1 POST SURGERY; EP/EMA REGIMEN
  10. APIXABAN [Concomitant]
     Active Substance: APIXABAN
     Indication: ANTICOAGULANT THERAPY
     Dosage: UNK
     Route: 065
  11. CARBOPLATIN. [Concomitant]
     Active Substance: CARBOPLATIN
     Indication: GESTATIONAL TROPHOBLASTIC TUMOUR
     Dosage: RECEIVED WITH CYCLE 10
     Route: 065
  12. PEMBROLIZUMAB. [Concomitant]
     Active Substance: PEMBROLIZUMAB
     Indication: GESTATIONAL TROPHOBLASTIC TUMOUR
     Dosage: 200 MILLIGRAM STARTING WITH CYCLE 6
  13. OXACILLIN [Concomitant]
     Active Substance: OXACILLIN SODIUM
     Indication: PRODUCT USED FOR UNKNOWN INDICATION
     Dosage: UNK
     Route: 042
  14. HEPARIN [Concomitant]
     Active Substance: HEPARIN SODIUM
     Indication: ANTICOAGULANT THERAPY
     Dosage: UNK
     Route: 065

REACTIONS (3)
  - Thrombocytopenia [Unknown]
  - Ototoxicity [Unknown]
  - Tinnitus [Unknown]
